FAERS Safety Report 9927790 (Version 3)
Quarter: 2018Q2

REPORT INFORMATION
  Report Type: Report from Study
  Country: US (occurrence: US)
  Receive Date: 20140227
  Receipt Date: 20180523
  Transmission Date: 20180711
  Serious: Yes (Other)
  Sender: FDA-Public Use
  Company Number: US-ROCHE-1337061

PATIENT
  Age: 13 Year
  Sex: Male
  Weight: 34.5 kg

DRUGS (1)
  1. NUTROPIN AQ [Suspect]
     Active Substance: SOMATROPIN
     Indication: BODY HEIGHT BELOW NORMAL
     Dosage: 20MG/2ML
     Route: 058
     Dates: start: 201304

REACTIONS (6)
  - Insulin-like growth factor decreased [Unknown]
  - Skin odour abnormal [Unknown]
  - Skin atrophy [Unknown]
  - Growth retardation [Unknown]
  - Nausea [Unknown]
  - Arthralgia [Recovered/Resolved]

NARRATIVE: CASE EVENT DATE: 20140206
